APPROVED DRUG PRODUCT: PAXIL CR
Active Ingredient: PAROXETINE HYDROCHLORIDE
Strength: EQ 37.5MG BASE
Dosage Form/Route: TABLET, EXTENDED RELEASE;ORAL
Application: N020936 | Product #003 | TE Code: AB
Applicant: APOTEX INC
Approved: Dec 6, 2000 | RLD: Yes | RS: Yes | Type: RX